FAERS Safety Report 8601090-2 (Version None)
Quarter: 2012Q3

REPORT INFORMATION
  Report Type: 
  Country: None (occurrence: None)
  Receive Date: 20120806
  Receipt Date: 20120806
  Transmission Date: 20120928
  Serious: Yes (Other)
  Sender: FDA-Public Use
  Company Number: None

PATIENT
  Age: 57 Year
  Sex: Female

DRUGS (3)
  1. CLONAZEPAM 1 MG 1QHS [Concomitant]
  2. NORCO 10 Q 4 H [Concomitant]
  3. NICODERM CQ [Suspect]
     Indication: TOBACCO USER
     Route: 062
     Dates: start: 20120717

REACTIONS (3)
  - FEELING ABNORMAL [None]
  - APHONIA [None]
  - MOVEMENT DISORDER [None]
